FAERS Safety Report 7154286-3 (Version None)
Quarter: 2010Q4

REPORT INFORMATION
  Report Type: 
  Country: None (occurrence: None)
  Receive Date: 20101213
  Receipt Date: 20101130
  Transmission Date: 20110411
  Serious: Yes (Other)
  Sender: FDA-Public Use
  Company Number: NL-MYLANLABS-2010S1021850

PATIENT
  Age: 61 Year
  Sex: Female
  Weight: 107 kg

DRUGS (1)
  1. ALENDRONATE [Suspect]
     Indication: POLYMYALGIA RHEUMATICA
     Dosage: 1 X DAAGS 1 TABLET
     Route: 048
     Dates: start: 20101126, end: 20101126

REACTIONS (5)
  - DIZZINESS [None]
  - FATIGUE [None]
  - HYPERSENSITIVITY [None]
  - MALAISE [None]
  - PAIN [None]
